FAERS Safety Report 11246363 (Version 1)
Quarter: 2015Q3

REPORT INFORMATION
  Report Type: Spontaneous
  Country: US (occurrence: None)
  Receive Date: 20150706
  Receipt Date: 20150706
  Transmission Date: 20151125
  Serious: Yes (Hospitalization)
  Sender: FDA-Public Use
  Company Number: None

PATIENT
  Age: 54 Year
  Sex: Male
  Weight: 103 kg

DRUGS (1)
  1. BEVACIZUMAB (RHUMAB VEGF) [Suspect]
     Active Substance: BEVACIZUMAB
     Dates: end: 20150602

REACTIONS (9)
  - Personality change [None]
  - Headache [None]
  - Encephalopathy [None]
  - Confusional state [None]
  - Memory impairment [None]
  - Asthenia [None]
  - Abnormal behaviour [None]
  - Treatment failure [None]
  - Visual impairment [None]

NARRATIVE: CASE EVENT DATE: 20150609
